FAERS Safety Report 17214032 (Version 1)
Quarter: 2019Q4

REPORT INFORMATION
  Report Type: Spontaneous
  Country: US (occurrence: US)
  Receive Date: 20191206
  Receipt Date: 20191206
  Transmission Date: 20200122
  Serious: No
  Sender: FDA-Public Use
  Company Number: None

PATIENT
  Age: 58 Year
  Sex: Male

DRUGS (2)
  1. TACROLIMUS CAP 0.5MG [Suspect]
     Active Substance: TACROLIMUS
     Indication: BONE MARROW TRANSPLANT
     Route: 048
  2. POSACONAZOLE [Suspect]
     Active Substance: POSACONAZOLE

REACTIONS (2)
  - Ingrowing nail [None]
  - Onychomycosis [None]

NARRATIVE: CASE EVENT DATE: 20191201
